FAERS Safety Report 15558550 (Version 1)
Quarter: 2018Q4

REPORT INFORMATION
  Report Type: Spontaneous
  Country: PT (occurrence: PT)
  Receive Date: 20181028
  Receipt Date: 20181028
  Transmission Date: 20190205
  Serious: Yes (Death, Life-Threatening, Hospitalization, Other)
  Sender: FDA-Public Use
  Company Number: PT-BAXTER-2018BAX026151

PATIENT
  Age: 47 Year
  Sex: Male

DRUGS (8)
  1. GENTAMICIN. [Concomitant]
     Active Substance: GENTAMICIN
     Indication: DEVICE RELATED INFECTION
     Route: 065
     Dates: start: 2014
  2. GENTAMICIN. [Concomitant]
     Active Substance: GENTAMICIN
     Indication: PERITONITIS
     Route: 065
     Dates: start: 2016
  3. VANCOMYCIN [Concomitant]
     Active Substance: VANCOMYCIN
     Indication: PERITONITIS
     Route: 065
     Dates: start: 2016
  4. ICODEXTRIN [Concomitant]
     Active Substance: ICODEXTRIN
     Indication: PERITONEAL DIALYSIS
     Route: 065
  5. CIPROFLOXACIN. [Concomitant]
     Active Substance: CIPROFLOXACIN
     Indication: DEVICE RELATED INFECTION
     Route: 065
     Dates: start: 2014
  6. GLUCOSE 5% VIAFLO [Suspect]
     Active Substance: DEXTROSE
     Indication: PERITONEAL DIALYSIS
     Dosage: PERITONEAL
     Route: 033
  7. RIFAXIMIN. [Concomitant]
     Active Substance: RIFAXIMIN
     Indication: PERITONITIS
     Route: 065
     Dates: start: 2014
  8. CEFTAZIDIME. [Concomitant]
     Active Substance: CEFTAZIDIME
     Indication: PERITONITIS
     Route: 065
     Dates: start: 2016

REACTIONS (2)
  - Encapsulating peritoneal sclerosis [Fatal]
  - Off label use [Unknown]
